FAERS Safety Report 9709768 (Version 1)
Quarter: 2013Q4

REPORT INFORMATION
  Report Type: Spontaneous
  Country: BR (occurrence: BR)
  Receive Date: 20131126
  Receipt Date: 20131126
  Transmission Date: 20140711
  Serious: Yes (Other)
  Sender: FDA-Public Use
  Company Number: BR-BRISTOL-MYERS SQUIBB COMPANY-19816982

PATIENT
  Age: 51 Year
  Sex: Female

DRUGS (3)
  1. GLIFAGE XR [Suspect]
     Indication: DIABETES MELLITUS
     Dates: start: 20131022
  2. ACETYLSALICYLIC ACID [Suspect]
  3. PIOGLITAZONE HCL [Concomitant]
     Indication: DIABETES MELLITUS

REACTIONS (3)
  - Eye haemorrhage [Unknown]
  - Cerebrovascular accident [Unknown]
  - Ocular discomfort [Unknown]
